FAERS Safety Report 22528313 (Version 1)
Quarter: 2023Q2

REPORT INFORMATION
  Report Type: Spontaneous
  Country: US (occurrence: US)
  Receive Date: 20230607
  Receipt Date: 20230607
  Transmission Date: 20230721
  Serious: Yes (Hospitalization)
  Sender: FDA-Public Use
  Company Number: US-drreddys-LIT/USA/23/0166270

PATIENT
  Age: 65 Year
  Sex: Male

DRUGS (1)
  1. SEVELAMER [Suspect]
     Active Substance: SEVELAMER
     Indication: Hyperparathyroidism

REACTIONS (5)
  - Colitis ulcerative [Unknown]
  - Enteritis [Unknown]
  - Excessive granulation tissue [Unknown]
  - Gastrointestinal mucosal disorder [Unknown]
  - Product use in unapproved indication [Unknown]
